FAERS Safety Report 11885537 (Version 4)
Quarter: 2017Q4

REPORT INFORMATION
  Report Type: Spontaneous
  Country: CA (occurrence: CA)
  Receive Date: 20160104
  Receipt Date: 20171204
  Transmission Date: 20180320
  Serious: Yes (Other)
  Sender: FDA-Public Use
  Company Number: CA-BAYER-2016-000119

PATIENT
  Sex: Female

DRUGS (5)
  1. COVERSYL PLUS [Suspect]
     Active Substance: INDAPAMIDE\PERINDOPRIL
     Dosage: 8/2.5
  2. MIRENA [Suspect]
     Active Substance: LEVONORGESTREL
  3. LIPITOR [Suspect]
     Active Substance: ATORVASTATIN CALCIUM
     Dosage: 10
  4. EFFEXOR [Suspect]
     Active Substance: VENLAFAXINE HYDROCHLORIDE
     Dosage: XR 225+32.5
  5. MIRENA [Suspect]
     Active Substance: LEVONORGESTREL
     Dosage: 20 MCG/24HR, CONT
     Route: 015
     Dates: start: 20100504

REACTIONS (3)
  - Device use error [None]
  - Urinary tract infection [None]
  - Type 2 diabetes mellitus [None]

NARRATIVE: CASE EVENT DATE: 2013
